FAERS Safety Report 10224134 (Version 1)
Quarter: 2014Q2

REPORT INFORMATION
  Report Type: Report from Study
  Country: US (occurrence: US)
  Receive Date: 20140609
  Receipt Date: 20140609
  Transmission Date: 20141212
  Serious: Yes (Hospitalization)
  Sender: FDA-Public Use
  Company Number: PHEH2014US011381

PATIENT
  Sex: Female

DRUGS (4)
  1. DIOVAN [Suspect]
     Dosage: 80 MG, UNK
     Route: 048
  2. DIOVAN [Suspect]
     Dosage: UNK UKN, UNK
     Route: 048
  3. DIOVAN HCT [Concomitant]
     Dosage: 80 MG, UNK
     Route: 048
  4. DIOVAN HCT [Concomitant]
     Dosage: 160 MG, UNK
     Route: 048

REACTIONS (2)
  - Malaise [Unknown]
  - Blood pressure increased [Unknown]
